FAERS Safety Report 8535070-2 (Version None)
Quarter: 2012Q3

REPORT INFORMATION
  Report Type: 
  Country: None (occurrence: None)
  Receive Date: 20120724
  Receipt Date: 20120717
  Transmission Date: 20120928
  Serious: Yes (Hospitalization)
  Sender: FDA-Public Use
  Company Number: US-PFIZER INC-2012117427

PATIENT
  Sex: Female
  Weight: 27.211 kg

DRUGS (7)
  1. ZYVOX [Suspect]
     Indication: STAPHYLOCOCCAL INFECTION
  2. NORCO [Concomitant]
     Indication: PAIN
     Dosage: 5/325MG
     Dates: start: 20120312, end: 20120319
  3. ACETYLSALICYLIC ACID [Concomitant]
     Indication: MEDICAL DEVICE IMPLANTATION
     Dosage: 81 MG, DAILY
     Route: 048
  4. ZYVOX [Suspect]
     Indication: OSTEOMYELITIS
  5. ZYVOX [Suspect]
     Indication: ILL-DEFINED DISORDER
     Dosage: 600 MG, 2X/DAY
     Route: 048
     Dates: start: 20120316, end: 20120414
  6. ANCEF [Concomitant]
     Indication: OSTEOMYELITIS
     Dosage: 1 G, UNK
     Dates: start: 20120312, end: 20120315
  7. ANCEF [Concomitant]
     Indication: STAPHYLOCOCCAL INFECTION

REACTIONS (14)
  - BOWEL MOVEMENT IRREGULARITY [None]
  - WEIGHT DECREASED [None]
  - DRUG INTOLERANCE [None]
  - DIARRHOEA [None]
  - GASTROINTESTINAL DISORDER [None]
  - VOMITING [None]
  - PAIN [None]
  - GASTRIC DISORDER [None]
  - WEIGHT INCREASED [None]
  - ALOPECIA [None]
  - GASTRITIS [None]
  - BLOOD POTASSIUM DECREASED [None]
  - APHAGIA [None]
  - FEELING ABNORMAL [None]
